FAERS Safety Report 6899405-9 (Version None)
Quarter: 2010Q3

REPORT INFORMATION
  Report Type: 
  Country: None (occurrence: None)
  Receive Date: 20100803
  Receipt Date: 20090516
  Transmission Date: 20110219
  Serious: No
  Sender: FDA-Public Use
  Company Number: US-PFIZER INC-2009176845

PATIENT
  Sex: Female
  Weight: 109 kg

DRUGS (5)
  1. NEURONTIN [Suspect]
     Indication: ANXIETY
     Dosage: UNK
     Dates: start: 20080501
  2. NEURONTIN [Suspect]
     Indication: NEURALGIA
  3. RITALIN [Suspect]
     Indication: ATTENTION DEFICIT/HYPERACTIVITY DISORDER
     Dosage: UNK
     Dates: start: 20080101
  4. COZAAR [Concomitant]
     Indication: HYPERTENSION
     Dosage: UNK
     Dates: start: 20081201
  5. EFFEXOR XR [Concomitant]
     Dosage: UNK

REACTIONS (2)
  - BLOOD GLUCOSE INCREASED [None]
  - WEIGHT DECREASED [None]
